FAERS Safety Report 5224945-8 (Version None)
Quarter: 2007Q1

REPORT INFORMATION
  Report Type: 
  Country: None (occurrence: None)
  Receive Date: 20070126
  Receipt Date: 20070116
  Transmission Date: 20070707
  Serious: Yes (Other)
  Sender: FDA-Public Use
  Company Number: B0454835A

PATIENT
  Age: 54 Year
  Sex: Male

DRUGS (2)
  1. AUGMENTIN '250' [Suspect]
     Indication: PNEUMONIA
     Dosage: SEE DOSAGE TEXT / INTRAVENO
     Route: 042
  2. AZITHROMYCIN [Concomitant]

REACTIONS (2)
  - CONDITION AGGRAVATED [None]
  - THROMBOCYTHAEMIA [None]
